FAERS Safety Report 20440720 (Version 1)
Quarter: 2022Q1

REPORT INFORMATION
  Report Type: Spontaneous
  Country: CN (occurrence: CN)
  Receive Date: 20220207
  Receipt Date: 20220207
  Transmission Date: 20220424
  Serious: Yes (Hospitalization, Other)
  Sender: FDA-Public Use
  Company Number: CN-BAXTER-2022BAX002480

PATIENT
  Age: 45 Year
  Sex: Female
  Weight: 53 kg

DRUGS (6)
  1. CYCLOPHOSPHAMIDE [Suspect]
     Active Substance: CYCLOPHOSPHAMIDE
     Indication: Follicular lymphoma
     Dosage: SODIUM CHLORIDE INJECTION 60 ML+ CYCLOPHOSPHAMIDE 1.13G
     Route: 042
     Dates: start: 20211230, end: 20211230
  2. SODIUM CHLORIDE [Suspect]
     Active Substance: SODIUM CHLORIDE
     Indication: Medication dilution
     Dosage: SODIUM CHLORIDE INJECTION 60 ML+ CYCLOPHOSPHAMIDE 1.13G
     Route: 042
     Dates: start: 20211230, end: 20211230
  3. RITUXIMAB [Suspect]
     Active Substance: RITUXIMAB
     Indication: Follicular lymphoma
     Dosage: SODIUM CHLORIDE INJECTION 500ML + RITUXIMAB 570 MG
     Route: 041
     Dates: start: 20211229, end: 20211229
  4. VINCRISTINE SULFATE [Suspect]
     Active Substance: VINCRISTINE SULFATE
     Indication: Follicular lymphoma
     Dosage: SODIUM CHLORIDE INJECTION 40ML + VINCRISTINE 2 MG
     Route: 042
     Dates: start: 20211230, end: 20211230
  5. SODIUM CHLORIDE [Suspect]
     Active Substance: SODIUM CHLORIDE
     Indication: Medication dilution
     Dosage: SODIUM CHLORIDE INJECTION 500ML + RITUXIMAB 570 MG
     Route: 041
     Dates: start: 20211229, end: 20211229
  6. SODIUM CHLORIDE [Suspect]
     Active Substance: SODIUM CHLORIDE
     Dosage: SODIUM CHLORIDE INJECTION 40ML + VINCRISTINE 2 MG
     Route: 042
     Dates: start: 20211230, end: 20211230

REACTIONS (1)
  - Myelosuppression [Recovering/Resolving]

NARRATIVE: CASE EVENT DATE: 20220107
